FAERS Safety Report 4833354-2 (Version None)
Quarter: 2005Q4

REPORT INFORMATION
  Report Type: 
  Country: None (occurrence: None)
  Receive Date: 20051118
  Receipt Date: 20051107
  Transmission Date: 20060501
  Serious: No
  Sender: FDA-Public Use
  Company Number: 05H-163-0303510-00

PATIENT
  Sex: 0

DRUGS (3)
  1. SODIUM CHLORIDE [Suspect]
     Indication: BRAIN OEDEMA
     Dosage: INTRAVENOUS INFUSION
     Route: 042
  2. SODIUM ACETATE [Suspect]
     Indication: BRAIN OEDEMA
     Dosage: INTRAVENOUS INFUSION
     Route: 042
  3. SODIUM ACETATE [Suspect]
     Indication: METABOLIC ACIDOSIS
     Dosage: INTRAVENOUS INFUSION
     Route: 042

REACTIONS (1)
  - PNEUMONIA [None]
